FAERS Safety Report 4611588-X (Version None)
Quarter: 2005Q1

REPORT INFORMATION
  Report Type: 
  Country: None (occurrence: None)
  Receive Date: 20050317
  Receipt Date: 20050316
  Transmission Date: 20050727
  Serious: Yes (Other)
  Sender: FDA-Public Use
  Company Number: US-GLAXOSMITHKLINE-A0550077A

PATIENT

DRUGS (2)
  1. NAVELBINE [Suspect]
     Indication: BREAST CANCER
     Route: 065
  2. NO CONCURRENT MEDICATION [Concomitant]

REACTIONS (1)
  - HAEMOLYTIC ANAEMIA [None]
